FAERS Safety Report 5809286-X (Version None)
Quarter: 2008Q3

REPORT INFORMATION
  Report Type: 
  Country: None (occurrence: None)
  Receive Date: 20080714
  Receipt Date: 20080701
  Transmission Date: 20090109
  Serious: No
  Sender: FDA-Public Use
  Company Number: US-BOEHRINGER INGELHEIM GMBH, GERMANY-2008-BP-07713BP

PATIENT
  Sex: Female

DRUGS (8)
  1. SPIRIVA [Suspect]
     Indication: EMPHYSEMA
     Route: 055
     Dates: start: 20070101
  2. SPIRIVA [Suspect]
     Indication: BRONCHITIS CHRONIC
  3. SPIRIVA [Suspect]
     Indication: CHRONIC OBSTRUCTIVE PULMONARY DISEASE
  4. BENICAR [Concomitant]
     Indication: HYPERTENSION
  5. NEXIUM [Concomitant]
     Indication: STOMACH DISCOMFORT
  6. BENADRYL [Concomitant]
     Indication: HYPERSENSITIVITY
  7. DIAZEPAM [Concomitant]
     Indication: PANIC ATTACK
  8. ALBUTEROL [Concomitant]

REACTIONS (1)
  - DYSPNOEA [None]
